FAERS Safety Report 6688278-5 (Version None)
Quarter: 2010Q2

REPORT INFORMATION
  Report Type: 
  Country: None (occurrence: None)
  Receive Date: 20100420
  Receipt Date: 20100211
  Transmission Date: 20101027
  Serious: No
  Sender: FDA-Public Use
  Company Number: US-BAYER-201013511NA

PATIENT
  Age: 83 Year
  Sex: Male

DRUGS (5)
  1. LEUKINE [Suspect]
     Indication: COLONY STIMULATING FACTOR THERAPY
     Dosage: DAILY FOR 2 DAYS FOLLOWING 5 DAYS OF VIDAZIA EACH MONTH
     Dates: start: 20080101, end: 20091101
  2. VIDAZA [Concomitant]
     Indication: MYELODYSPLASTIC SYNDROME
     Dosage: AS USED: 150 MG
     Dates: start: 20080101
  3. VIDAZA [Concomitant]
     Dosage: AS USED: 100 MG
     Dates: start: 20100201, end: 20100201
  4. JOINT ADVANTAGE [Concomitant]
  5. PROBOTIC ADVANTAGE [Concomitant]

REACTIONS (5)
  - ASTHENIA [None]
  - BONE PAIN [None]
  - CONSTIPATION [None]
  - MUSCULOSKELETAL DISCOMFORT [None]
  - RED BLOOD CELL COUNT DECREASED [None]
